FAERS Safety Report 6446202-4 (Version None)
Quarter: 2009Q4

REPORT INFORMATION
  Report Type: 
  Country: None (occurrence: None)
  Receive Date: 20091119
  Receipt Date: 20091110
  Transmission Date: 20100525
  Serious: Yes (Other)
  Sender: FDA-Public Use
  Company Number: US-JNJFOC-20060307417

PATIENT
  Sex: Female
  Weight: 79.38 kg

DRUGS (7)
  1. RISPERDAL [Suspect]
     Indication: DRUG USE FOR UNKNOWN INDICATION
     Route: 048
  2. SEROQUEL [Suspect]
     Indication: DRUG USE FOR UNKNOWN INDICATION
  3. EFFEXOR [Concomitant]
  4. LIBRIUM [Concomitant]
  5. TRAZODONE HCL [Concomitant]
  6. VIOXX [Concomitant]
  7. PRILOSEC [Concomitant]

REACTIONS (1)
  - TYPE 2 DIABETES MELLITUS [None]
